FAERS Safety Report 13770054 (Version 1)
Quarter: 2017Q3

REPORT INFORMATION
  Report Type: Spontaneous
  Country: US (occurrence: US)
  Receive Date: 20170719
  Receipt Date: 20170719
  Transmission Date: 20171127
  Serious: Yes (Other)
  Sender: FDA-Public Use
  Company Number: None

PATIENT
  Age: 67 Year
  Sex: Male

DRUGS (1)
  1. REVLIMID [Suspect]
     Active Substance: LENALIDOMIDE
     Indication: PLASMA CELL MYELOMA
     Route: 048
     Dates: start: 20170419

REACTIONS (4)
  - Therapy cessation [None]
  - Blood potassium decreased [None]
  - Blood magnesium decreased [None]
  - Blood calcium decreased [None]

NARRATIVE: CASE EVENT DATE: 20170530
